FAERS Safety Report 6894349-0 (Version None)
Quarter: 2010Q3

REPORT INFORMATION
  Report Type: 
  Country: None (occurrence: None)
  Receive Date: 20100726
  Receipt Date: 20100715
  Transmission Date: 20110219
  Serious: Yes (Hospitalization)
  Sender: FDA-Public Use
  Company Number: 102052- 1

PATIENT
  Age: 58 Year
  Sex: Male

DRUGS (2)
  1. CISPLATIN [Suspect]
     Indication: HEAD AND NECK CANCER
     Dosage: 144MG, 142MG
     Dates: start: 20100526
  2. CISPLATIN [Suspect]
     Indication: HEAD AND NECK CANCER
     Dosage: 144MG, 142MG
     Dates: start: 20100616

REACTIONS (5)
  - HICCUPS [None]
  - MUCOSAL INFLAMMATION [None]
  - NAUSEA [None]
  - ODYNOPHAGIA [None]
  - VOMITING [None]
